FAERS Safety Report 19127021 (Version 2)
Quarter: 2021Q2

REPORT INFORMATION
  Report Type: Spontaneous
  Country: FR (occurrence: FR)
  Receive Date: 20210412
  Receipt Date: 20210413
  Transmission Date: 20210717
  Serious: Yes (Other)
  Sender: FDA-Public Use
  Company Number: FR-009507513-2104FRA002146

PATIENT
  Age: 71 Year
  Sex: Female

DRUGS (8)
  1. LYRICA [Concomitant]
     Active Substance: PREGABALIN
     Indication: DIABETIC NEUROPATHY
  2. JANUVIA [Suspect]
     Active Substance: SITAGLIPTIN PHOSPHATE
     Dosage: UNK
     Dates: start: 2021
  3. INSULIN [Suspect]
     Active Substance: INSULIN NOS
     Indication: DIABETES MELLITUS
     Dosage: UNK
  4. JANUVIA [Suspect]
     Active Substance: SITAGLIPTIN PHOSPHATE
     Indication: DIABETES MELLITUS
     Dosage: UNK
     Dates: start: 2007
  5. KARDEGIC [Concomitant]
     Active Substance: ASPIRIN DL-LYSINE
     Dosage: UNK
  6. LYRICA [Concomitant]
     Active Substance: PREGABALIN
     Indication: RETINOPATHY
     Dosage: UNK
  7. LEVOTHYROX [Concomitant]
     Active Substance: LEVOTHYROXINE
     Indication: HYPOTHYROIDISM
     Dosage: UNK
  8. COVERSYL (PERINDOPRIL ARGININE) [Concomitant]
     Active Substance: PERINDOPRIL ARGININE
     Dosage: UNK

REACTIONS (6)
  - Diabetes mellitus inadequate control [Unknown]
  - Dry mouth [Unknown]
  - Feeling cold [Unknown]
  - Drug ineffective [Unknown]
  - Blood glucose abnormal [Unknown]
  - Headache [Unknown]

NARRATIVE: CASE EVENT DATE: 2021
